FAERS Safety Report 5961585-7 (Version None)
Quarter: 2008Q4

REPORT INFORMATION
  Report Type: 
  Country: None (occurrence: None)
  Receive Date: 20081119
  Receipt Date: 20081103
  Transmission Date: 20090506
  Serious: Yes (Other)
  Sender: FDA-Public Use
  Company Number: 19742

PATIENT
  Age: 65 Year
  Sex: Female
  Weight: 70 kg

DRUGS (1)
  1. PACLITAXEL [Suspect]
     Dates: start: 20080328, end: 20080731

REACTIONS (5)
  - CHEST DISCOMFORT [None]
  - ERYTHEMA [None]
  - FEELING HOT [None]
  - HYPOTENSION [None]
  - OXYGEN SATURATION DECREASED [None]
